FAERS Safety Report 16315560 (Version 1)
Quarter: 2019Q2

REPORT INFORMATION
  Report Type: Spontaneous
  Country: US (occurrence: US)
  Receive Date: 20190515
  Receipt Date: 20190515
  Transmission Date: 20190711
  Serious: No
  Sender: FDA-Public Use
  Company Number: US-SA-2019SA125550

PATIENT
  Age: 53 Year
  Sex: Female

DRUGS (1)
  1. LOVENOX [Suspect]
     Active Substance: ENOXAPARIN SODIUM
     Indication: PULMONARY EMBOLISM
     Dosage: 40 MG, QD
     Route: 065
     Dates: start: 20190414

REACTIONS (2)
  - Device leakage [Unknown]
  - Back disorder [Unknown]
